FAERS Safety Report 7813410-7 (Version None)
Quarter: 2011Q4

REPORT INFORMATION
  Report Type: 
  Country: None (occurrence: None)
  Receive Date: 20111014
  Receipt Date: 20111006
  Transmission Date: 20120403
  Serious: Yes (Hospitalization)
  Sender: FDA-Public Use
  Company Number: US-BIOGENIDEC-2011BI003451

PATIENT
  Age: 53 Year
  Sex: Female

DRUGS (1)
  1. TYSABRI [Suspect]
     Indication: MULTIPLE SCLEROSIS
     Route: 042
     Dates: start: 20081217

REACTIONS (6)
  - MALAISE [None]
  - CHRONIC OBSTRUCTIVE PULMONARY DISEASE [None]
  - GAIT DISTURBANCE [None]
  - VEIN DISORDER [None]
  - MULTIPLE SCLEROSIS RELAPSE [None]
  - DYSPNOEA [None]
